FAERS Safety Report 7138884-9 (Version None)
Quarter: 2010Q4

REPORT INFORMATION
  Report Type: 
  Country: None (occurrence: None)
  Receive Date: 20101206
  Receipt Date: 20101125
  Transmission Date: 20110411
  Serious: Yes (Hospitalization)
  Sender: FDA-Public Use
  Company Number: B0687374A

PATIENT
  Age: 28 Year
  Sex: Female
  Weight: 60 kg

DRUGS (1)
  1. ALLI [Suspect]
     Indication: OVERWEIGHT
     Route: 048
     Dates: start: 20101001, end: 20101021

REACTIONS (1)
  - PANCREATITIS ACUTE [None]
